FAERS Safety Report 21126621 (Version 1)
Quarter: 2022Q3

REPORT INFORMATION
  Report Type: Spontaneous
  Country: GB (occurrence: GB)
  Receive Date: 20220725
  Receipt Date: 20220725
  Transmission Date: 20221027
  Serious: Yes (Death, Other)
  Sender: FDA-Public Use
  Company Number: GB-MHRA-MED-202206200955126750-BCMVJ

PATIENT
  Age: 39 Year
  Sex: Female

DRUGS (12)
  1. CLOPIDOGREL [Suspect]
     Active Substance: CLOPIDOGREL BISULFATE
     Indication: Acute myocardial infarction
     Dosage: 75 MILLIGRAM DAILY; UNIT DOSE : 75 MG
     Dates: end: 20220617
  2. WARFARIN [Suspect]
     Active Substance: WARFARIN
     Indication: Pulmonary embolism
     Dosage: DURATION 259 DAYS
     Dates: start: 20211001, end: 20220617
  3. AMLODIPINE [Concomitant]
     Active Substance: AMLODIPINE BESYLATE
     Indication: Hypertension
     Dosage: 10 MILLIGRAM DAILY; UNIT DOSE : 10 MG
  4. ATORVASTATIN [Concomitant]
     Active Substance: ATORVASTATIN
     Indication: Acute myocardial infarction
     Dosage: 40 MILLIGRAM DAILY; TAKEN AT NIGHT, UNIT DOSE : 40 MG
  5. CHLORPHENIRAMINE [Concomitant]
     Active Substance: CHLORPHENIRAMINE
     Indication: Hypersensitivity
     Dosage: 4 MG, AS NECESSARY
  6. DARBEPOETIN ALFA [Concomitant]
     Active Substance: DARBEPOETIN ALFA
     Indication: Nephrogenic anaemia
     Dosage: 60 MICROGRAM, FREQUENCY TIME-1 WEEK
  7. HYDRALAZINE [Concomitant]
     Active Substance: HYDRALAZINE HYDROCHLORIDE
     Indication: Hypertension
     Dosage: 100 MILLIGRAM DAILY; UNIT DOSE : 50 MG, BD
  8. LANSOPRAZOLE [Concomitant]
     Active Substance: LANSOPRAZOLE
     Indication: Dyspepsia
     Dosage: 30 MILLIGRAM DAILY; UNIT DOSE : 30 MG
  9. MIRTAZAPINE [Concomitant]
     Active Substance: MIRTAZAPINE
     Indication: Depression
     Dosage: 45 MILLIGRAM DAILY; TAKEN AT NIGHT, UNIT DOSE : 45 MG
  10. VITAMINS [Concomitant]
     Active Substance: VITAMINS
     Indication: Product used for unknown indication
     Dosage: FREQUENCY-1, FREQUENCY TIME-1 DAY
  11. RENAVIT [Concomitant]
     Indication: End stage renal disease
  12. SODIUM BICARBONATE [Concomitant]
     Active Substance: SODIUM BICARBONATE
     Indication: End stage renal disease
     Dosage: 3 GRAM DAILY; UNIT DOSE : 1 G, THREE TIMES A DAY

REACTIONS (3)
  - Subdural haematoma [Fatal]
  - Procedural haemorrhage [Unknown]
  - Pupil fixed [Unknown]

NARRATIVE: CASE EVENT DATE: 20220617
